FAERS Safety Report 7525413-0 (Version None)
Quarter: 2011Q2

REPORT INFORMATION
  Report Type: 
  Country: None (occurrence: None)
  Receive Date: 20110526
  Receipt Date: 20110513
  Transmission Date: 20111010
  Serious: Yes (Hospitalization)
  Sender: FDA-Public Use
  Company Number: 2011MA005885

PATIENT
  Age: 23 Year
  Sex: Female

DRUGS (1)
  1. RAMIPRIL [Suspect]
     Dosage: 5 MG

REACTIONS (3)
  - HYPERSENSITIVITY [None]
  - ANGIOEDEMA [None]
  - RASH PAPULAR [None]
